FAERS Safety Report 8613651 (Version 2)
Quarter: 2013Q3

REPORT INFORMATION
  Report Type: Spontaneous
  Country: US (occurrence: US)
  Receive Date: 20120614
  Receipt Date: 20130805
  Transmission Date: 20140515
  Serious: No
  Sender: FDA-Public Use
  Company Number: US-BIOGENIDEC-2012BI020578

PATIENT
  Age: 50 Year
  Sex: Female

DRUGS (2)
  1. AVONEX [Suspect]
     Indication: MULTIPLE SCLEROSIS
     Route: 030
     Dates: start: 20110421
  2. AVONEX [Suspect]
     Indication: MULTIPLE SCLEROSIS
     Route: 030
     Dates: start: 20120816, end: 2013

REACTIONS (5)
  - Diplopia [Not Recovered/Not Resolved]
  - Photopsia [Not Recovered/Not Resolved]
  - Multiple sclerosis relapse [Unknown]
  - Thyroid disorder [Not Recovered/Not Resolved]
  - Fatigue [Recovered/Resolved]
